FAERS Safety Report 13491173 (Version 1)
Quarter: 2017Q2

REPORT INFORMATION
  Report Type: Spontaneous
  Country: IL (occurrence: IL)
  Receive Date: 20170427
  Receipt Date: 20170427
  Transmission Date: 20170830
  Serious: Yes (Life-Threatening, Hospitalization, Other)
  Sender: FDA-Public Use
  Company Number: IL-TEVA-761982ACC

PATIENT
  Age: 75 Year
  Sex: Female

DRUGS (6)
  1. LEVETIRACETAM TEVA 500 MG [Suspect]
     Active Substance: LEVETIRACETAM
     Indication: CRANIOTOMY
     Dosage: 1000 MILLIGRAM DAILY;
     Route: 048
     Dates: start: 20170115
  2. OMEPRADEX [Concomitant]
     Active Substance: OMEPRAZOLE
  3. NORMITEN [Concomitant]
     Active Substance: ATENOLOL
  4. LEVETIRACETAM TEVA 500 MG [Suspect]
     Active Substance: LEVETIRACETAM
     Indication: BRAIN ABSCESS
  5. CLEXANE [Concomitant]
     Active Substance: ENOXAPARIN SODIUM
  6. ROCEPHIN [Concomitant]
     Active Substance: CEFTRIAXONE SODIUM

REACTIONS (1)
  - Neutropenia [Not Recovered/Not Resolved]

NARRATIVE: CASE EVENT DATE: 20170219
